FAERS Safety Report 14334195 (Version 2)
Quarter: 2018Q1

REPORT INFORMATION
  Report Type: Spontaneous
  Country: US (occurrence: US)
  Receive Date: 20171228
  Receipt Date: 20180309
  Transmission Date: 20180509
  Serious: No
  Sender: FDA-Public Use
  Company Number: US-LUNDBECK-DKLU2030275

PATIENT
  Sex: Female
  Weight: 69 kg

DRUGS (3)
  1. NORTHERA [Suspect]
     Active Substance: DROXIDOPA
     Route: 048
     Dates: start: 20170413, end: 20170512
  2. NORTHERA [Suspect]
     Active Substance: DROXIDOPA
     Indication: PRODUCT USED FOR UNKNOWN INDICATION
     Route: 048
     Dates: start: 20170413, end: 20170512
  3. NORTHERA [Suspect]
     Active Substance: DROXIDOPA
     Route: 048
     Dates: start: 20170413, end: 20170512

REACTIONS (6)
  - Dizziness postural [Unknown]
  - Drug ineffective [Unknown]
  - Dizziness [Unknown]
  - Hypotension [Unknown]
  - Stress [Unknown]
  - Head discomfort [Unknown]
